FAERS Safety Report 9597368 (Version 3)
Quarter: 2014Q3

REPORT INFORMATION
  Report Type: Spontaneous
  Country: US (occurrence: US)
  Receive Date: 20131004
  Receipt Date: 20140804
  Transmission Date: 20150326
  Serious: No
  Sender: FDA-Public Use
  Company Number: US-AMGEN-USASP2013018802

PATIENT
  Age: 56 Year
  Sex: Female
  Weight: 99.32 kg

DRUGS (2)
  1. ENBREL [Suspect]
     Active Substance: ETANERCEPT
     Dosage: UNK
     Route: 065
  2. ENBREL [Suspect]
     Active Substance: ETANERCEPT
     Indication: ARTHRITIS
     Dosage: 50 MG, QWK
     Route: 058
     Dates: start: 2013, end: 2014

REACTIONS (12)
  - Alopecia [Not Recovered/Not Resolved]
  - Injection site erythema [Recovered/Resolved]
  - Drug ineffective [Unknown]
  - Tendon disorder [Not Recovered/Not Resolved]
  - Joint warmth [Not Recovered/Not Resolved]
  - Induration [Not Recovered/Not Resolved]
  - Arthritis [Not Recovered/Not Resolved]
  - Injection site pain [Recovered/Resolved]
  - Injection site swelling [Recovered/Resolved]
  - Muscle spasms [Not Recovered/Not Resolved]
  - Injection site reaction [Recovered/Resolved]
  - Hypoaesthesia [Not Recovered/Not Resolved]

NARRATIVE: CASE EVENT DATE: 20130201
